FAERS Safety Report 21779299 (Version 4)
Quarter: 2024Q4

REPORT INFORMATION
  Report Type: Report from Study
  Country: CO (occurrence: CO)
  Receive Date: 20221226
  Receipt Date: 20241004
  Transmission Date: 20250115
  Serious: Yes (Hospitalization, Other)
  Sender: TAKEDA
  Company Number: CO-TAKEDA-2019TUS053947

PATIENT
  Age: 32 Year
  Sex: Female
  Weight: 64 kg

DRUGS (2)
  1. VEDOLIZUMAB [Suspect]
     Active Substance: VEDOLIZUMAB
     Indication: Colitis ulcerative
     Dosage: 300 MILLIGRAM
     Route: 042
     Dates: start: 20190830
  2. COVID-19 vaccine [Concomitant]
     Dosage: UNK
     Dates: start: 20211110

REACTIONS (13)
  - Acute myocardial infarction [Recovered/Resolved]
  - Haemoglobin decreased [Recovered/Resolved]
  - Vertigo [Recovered/Resolved]
  - Weight increased [Unknown]
  - Toothache [Not Recovered/Not Resolved]
  - Face oedema [Not Recovered/Not Resolved]
  - Pulpitis dental [Not Recovered/Not Resolved]
  - Administration site pain [Recovering/Resolving]
  - Influenza like illness [Recovering/Resolving]
  - Treatment noncompliance [Unknown]
  - Headache [Recovering/Resolving]
  - Pyrexia [Recovering/Resolving]
  - Influenza [Unknown]

NARRATIVE: CASE EVENT DATE: 20201026
